FAERS Safety Report 7042024-4 (Version None)
Quarter: 2010Q4

REPORT INFORMATION
  Report Type: 
  Country: None (occurrence: None)
  Receive Date: 20101013
  Receipt Date: 20090901
  Transmission Date: 20110411
  Serious: No
  Sender: FDA-Public Use
  Company Number: US-ASTRAZENECA-2009SE10860

PATIENT
  Age: 69 Year
  Sex: Female

DRUGS (2)
  1. SYMBICORT [Suspect]
     Indication: ASTHMA
     Dosage: 80/4.5  UG
     Route: 055
     Dates: start: 20090301
  2. FLUTICASONE PROPIONATE [Concomitant]

REACTIONS (1)
  - LIP DISORDER [None]
